FAERS Safety Report 9240175 (Version 1)
Quarter: 2013Q2

REPORT INFORMATION
  Report Type: Spontaneous
  Country: US (occurrence: None)
  Receive Date: 20130418
  Receipt Date: 20130418
  Transmission Date: 20140414
  Serious: Yes (Other)
  Sender: FDA-Public Use
  Company Number: None

PATIENT
  Age: 31 Year
  Sex: Female
  Weight: 107.05 kg

DRUGS (2)
  1. COMPAZINE [Suspect]
     Indication: MIGRAINE
     Route: 042
     Dates: start: 20130416, end: 20130416
  2. COMPAZINE [Concomitant]

REACTIONS (4)
  - Restlessness [None]
  - Feeling jittery [None]
  - Delusion [None]
  - Fear [None]
